FAERS Safety Report 6842147-6 (Version None)
Quarter: 2010Q3

REPORT INFORMATION
  Report Type: 
  Country: None (occurrence: None)
  Receive Date: 20100714
  Receipt Date: 20070724
  Transmission Date: 20110219
  Serious: No
  Sender: FDA-Public Use
  Company Number: US-PFIZER INC-2007062171

PATIENT
  Sex: Female
  Weight: 42.3 kg

DRUGS (8)
  1. CHANTIX [Suspect]
     Indication: SMOKING CESSATION THERAPY
     Route: 048
     Dates: start: 20070717
  2. LEXAPRO [Concomitant]
  3. RITALIN [Concomitant]
  4. XANAX [Concomitant]
  5. SEROQUEL [Concomitant]
  6. PROTONIX [Concomitant]
  7. CLARITIN [Concomitant]
  8. LISINOPRIL [Concomitant]

REACTIONS (4)
  - ABNORMAL DREAMS [None]
  - CONSTIPATION [None]
  - NAUSEA [None]
  - VOMITING [None]
